FAERS Safety Report 6818747-6 (Version None)
Quarter: 2010Q2

REPORT INFORMATION
  Report Type: 
  Country: None (occurrence: None)
  Receive Date: 20100630
  Receipt Date: 20100614
  Transmission Date: 20101027
  Serious: Yes (Hospitalization, Disabling)
  Sender: FDA-Public Use
  Company Number: 1-23020128

PATIENT
  Age: 86 Year
  Sex: Male

DRUGS (3)
  1. WARFARIN SODIUM [Suspect]
     Indication: THROMBOSIS PROPHYLAXIS
     Dosage: 2.5 MG/DAY ORAL
     Route: 048
  2. ASPIRIN [Concomitant]
  3. BISOPROLOL FUMARATE [Concomitant]

REACTIONS (10)
  - ANTERIOR CHAMBER DISORDER [None]
  - BLINDNESS UNILATERAL [None]
  - CHOROIDAL HAEMORRHAGE [None]
  - EYE PAIN [None]
  - FLAT ANTERIOR CHAMBER OF EYE [None]
  - HEADACHE [None]
  - INTRAOCULAR PRESSURE INCREASED [None]
  - PROTHROMBIN TIME PROLONGED [None]
  - RETINAL HAEMORRHAGE [None]
  - VITREOUS HAEMORRHAGE [None]
